FAERS Safety Report 21018760 (Version 1)
Quarter: 2022Q2

REPORT INFORMATION
  Report Type: Spontaneous
  Country: US (occurrence: US)
  Receive Date: 20220628
  Receipt Date: 20220628
  Transmission Date: 20220720
  Serious: No
  Sender: FDA-Public Use
  Company Number: US-PFIZER INC-PV202200010283

PATIENT
  Age: 74 Year
  Sex: Female

DRUGS (3)
  1. IBRANCE [Suspect]
     Active Substance: PALBOCICLIB
     Indication: Invasive ductal breast carcinoma
     Dosage: 100 MG
  2. ANASTROZOLE [Suspect]
     Active Substance: ANASTROZOLE
     Indication: Invasive breast carcinoma
     Dosage: UNK
  3. DENOSUMAB [Concomitant]
     Active Substance: DENOSUMAB
     Dosage: UNK

REACTIONS (3)
  - Tumour marker decreased [Recovering/Resolving]
  - Arthralgia [Recovering/Resolving]
  - Dyspnoea [Recovering/Resolving]
